FAERS Safety Report 9886576 (Version 2)
Quarter: 2014Q1

REPORT INFORMATION
  Report Type: Spontaneous
  Country: US (occurrence: US)
  Receive Date: 20140210
  Receipt Date: 20140214
  Transmission Date: 20141002
  Serious: Yes (Hospitalization, Other)
  Sender: FDA-Public Use
  Company Number: US-ELI_LILLY_AND_COMPANY-US201402000191

PATIENT
  Sex: Male

DRUGS (4)
  1. HUMALOG 25% LISPRO, 75% NPL [Suspect]
     Indication: TYPE 2 DIABETES MELLITUS
     Dosage: UNK, BID
     Route: 065
     Dates: start: 1996
  2. HUMALOG 25% LISPRO, 75% NPL [Suspect]
     Indication: TYPE 2 DIABETES MELLITUS
     Dosage: UNK
     Route: 065
     Dates: start: 201401
  3. HUMALOG 25% LISPRO, 75% NPL [Suspect]
     Dosage: UNK UNK, BID
     Route: 065
  4. HUMALOG 25% LISPRO, 75% NPL [Suspect]
     Dosage: UNK, BID
     Route: 065

REACTIONS (6)
  - Coronary artery occlusion [Unknown]
  - Chest pain [Unknown]
  - Visual impairment [Not Recovered/Not Resolved]
  - Thyroid disorder [Unknown]
  - Incorrect drug dosage form administered [Not Recovered/Not Resolved]
  - Malaise [Not Recovered/Not Resolved]
